FAERS Safety Report 16484398 (Version 1)
Quarter: 2019Q2

REPORT INFORMATION
  Report Type: Spontaneous
  Country: US (occurrence: US)
  Receive Date: 20190517
  Receipt Date: 20190517
  Transmission Date: 20190711
  Serious: Yes (Other)
  Sender: FDA-Public Use
  Company Number: None

PATIENT
  Age: 39 Year
  Sex: Female
  Weight: 76.66 kg

DRUGS (1)
  1. BACTRIM DS [Suspect]
     Active Substance: SULFAMETHOXAZOLE\TRIMETHOPRIM
     Indication: INFECTION
     Dosage: ?          QUANTITY:800-160MG;?
     Route: 048
     Dates: start: 20190405, end: 20190414

REACTIONS (5)
  - Swollen tongue [None]
  - Gingival swelling [None]
  - Oropharyngeal pain [None]
  - Crying [None]
  - Dyspnoea [None]

NARRATIVE: CASE EVENT DATE: 20190405
